FAERS Safety Report 20087836 (Version 3)
Quarter: 2022Q3

REPORT INFORMATION
  Report Type: Report from Study
  Country: US (occurrence: US)
  Receive Date: 20211118
  Receipt Date: 20220719
  Transmission Date: 20221027
  Serious: Yes (Hospitalization, Other)
  Sender: FDA-Public Use
  Company Number: US-OTSUKA-2021_039428

PATIENT
  Age: 65 Year
  Sex: Male

DRUGS (2)
  1. CEDAZURIDINE\DECITABINE [Suspect]
     Active Substance: CEDAZURIDINE\DECITABINE
     Indication: Myelodysplastic syndrome
     Dosage: 135 MG (35 MG DECITABINE AND 100 MG CEDAZURIDINE), QD (ON DAYS 1-5) OF EACH 28-DAY CYCLE
     Route: 048
     Dates: start: 20211020
  2. CEDAZURIDINE\DECITABINE [Suspect]
     Active Substance: CEDAZURIDINE\DECITABINE
     Dosage: 1 DF, QD (35 MG DECITABINE AND 100 MG CEDAZURIDINE), QD (ON DAYS 1-4) OF EACH 28-DAY CYCLE
     Route: 048
     Dates: start: 20220523

REACTIONS (3)
  - Adverse event [Unknown]
  - Transfusion [Unknown]
  - Product use issue [Unknown]

NARRATIVE: CASE EVENT DATE: 20220523
